FAERS Safety Report 8533957 (Version 2)
Quarter: 2013Q2

REPORT INFORMATION
  Report Type: Spontaneous
  Country: US (occurrence: US)
  Receive Date: 20120427
  Receipt Date: 20130424
  Transmission Date: 20140414
  Serious: Yes (Other)
  Sender: FDA-Public Use
  Company Number: US-ROCHE-1061681

PATIENT
  Sex: Male
  Weight: 54.48 kg

DRUGS (2)
  1. ACCUTANE [Suspect]
     Indication: ACNE
     Route: 065
     Dates: start: 1996, end: 1998
  2. ACCUTANE [Suspect]
     Route: 065
     Dates: start: 20020714, end: 20021010

REACTIONS (5)
  - Injury [Unknown]
  - Inflammatory bowel disease [Unknown]
  - Crohn^s disease [Unknown]
  - Depression [Unknown]
  - Irritable bowel syndrome [Unknown]
